FAERS Safety Report 4302317-8 (Version None)
Quarter: 2004Q1

REPORT INFORMATION
  Report Type: 
  Country: None (occurrence: None)
  Receive Date: 20040223
  Receipt Date: 20030922
  Transmission Date: 20041129
  Serious: Yes (Disabling)
  Sender: FDA-Public Use
  Company Number: WAES 0309DEU00168

PATIENT
  Age: 51 Year
  Sex: Male
  Weight: 80 kg

DRUGS (8)
  1. ATORVASTATIN CALCIUM [Concomitant]
     Route: 048
     Dates: end: 20030801
  2. DICLOFENAC [Concomitant]
     Dates: start: 20030801, end: 20030801
  3. DIPYRONE [Concomitant]
     Route: 048
     Dates: start: 20030801, end: 20030801
  4. METOPROLOL SUCCINATE [Concomitant]
     Route: 048
     Dates: end: 20030801
  5. PANTOPRAZOLE SODIUM [Concomitant]
     Dates: end: 20030801
  6. VIOXX [Suspect]
     Indication: POST PROCEDURAL PAIN
     Route: 048
     Dates: start: 20030812, end: 20030820
  7. VIOXX [Suspect]
     Route: 048
     Dates: start: 20030821, end: 20030911
  8. TRAMADOL HYDROCHLORIDE [Concomitant]
     Route: 048
     Dates: start: 20030812, end: 20030901

REACTIONS (13)
  - BACTERIAL INFECTION [None]
  - BURNING SENSATION [None]
  - DERMATITIS CONTACT [None]
  - DERMATITIS EXFOLIATIVE [None]
  - DISEASE RECURRENCE [None]
  - DRUG HYPERSENSITIVITY [None]
  - ICHTHYOSIS ACQUIRED [None]
  - NOSOCOMIAL INFECTION [None]
  - PAIN OF SKIN [None]
  - RASH GENERALISED [None]
  - RASH PAPULAR [None]
  - RASH VESICULAR [None]
  - SKIN DESQUAMATION [None]
